FAERS Safety Report 4976088-6 (Version None)
Quarter: 2006Q2

REPORT INFORMATION
  Report Type: 
  Country: None (occurrence: None)
  Receive Date: 20060411
  Receipt Date: 20060323
  Transmission Date: 20061013
  Serious: Yes (Other)
  Sender: FDA-Public Use
  Company Number: US200603006069

PATIENT
  Age: 88 Year
  Sex: Female

DRUGS (2)
  1. FORTEO [Suspect]
     Indication: OSTEOPOROSIS
     Dates: start: 20051001
  2. FORTEO PEN (FORTEO PEN) [Concomitant]

REACTIONS (3)
  - BLINDNESS [None]
  - PHARMACEUTICAL PRODUCT COMPLAINT [None]
  - RETINAL VASCULAR DISORDER [None]
